FAERS Safety Report 25340591 (Version 1)
Quarter: 2025Q2

REPORT INFORMATION
  Report Type: Spontaneous
  Country: US (occurrence: US)
  Receive Date: 20250521
  Receipt Date: 20250521
  Transmission Date: 20250716
  Serious: Yes (Other)
  Sender: AUROBINDO
  Company Number: US-MLMSERVICE-20250421-PI483073-00072-2

PATIENT
  Age: 55 Year
  Sex: Male

DRUGS (8)
  1. BUPIVACAINE HYDROCHLORIDE [Suspect]
     Active Substance: BUPIVACAINE HYDROCHLORIDE
     Indication: Pain
     Route: 037
  2. METHADONE [Suspect]
     Active Substance: METHADONE HYDROCHLORIDE
     Indication: Pain
     Route: 065
  3. HYDROMORPHONE [Suspect]
     Active Substance: HYDROMORPHONE
     Indication: Pain
     Route: 042
  4. HYDROMORPHONE [Suspect]
     Active Substance: HYDROMORPHONE
     Route: 048
  5. LIDOCAINE [Suspect]
     Active Substance: LIDOCAINE
     Indication: Pain
     Route: 065
  6. SUFENTANIL [Suspect]
     Active Substance: SUFENTANIL
     Indication: Pain
     Dosage: 700 MICROGRAM, ONCE A DAY
     Route: 037
  7. FENTANYL [Suspect]
     Active Substance: FENTANYL
     Indication: Pain
     Route: 065
  8. CLONIDINE [Concomitant]
     Active Substance: CLONIDINE
     Indication: Pain
     Route: 037

REACTIONS (8)
  - Muscle spasticity [Unknown]
  - Delirium [Unknown]
  - Neurotoxicity [Unknown]
  - Withdrawal syndrome [Unknown]
  - Drug ineffective [Unknown]
  - Tremor [Unknown]
  - Agitation [Unknown]
  - Myoclonus [Unknown]
